FAERS Safety Report 24577860 (Version 1)
Quarter: 2024Q4

REPORT INFORMATION
  Report Type: Report from Study
  Country: DE (occurrence: DE)
  Receive Date: 20241104
  Receipt Date: 20241104
  Transmission Date: 20250115
  Serious: Yes (Hospitalization, Other)
  Sender: BAUSCH AND LOMB
  Company Number: DE-SA-SAC20240215000934

PATIENT
  Age: 56 Year
  Sex: Male
  Weight: 81 kg

DRUGS (52)
  1. DEXAMETHASONE [Suspect]
     Active Substance: DEXAMETHASONE
     Indication: Plasma cell myeloma refractory
     Dosage: 20 MG, 6 TIMES (1,2,8,9,15,16) (START DATE: 27/DEC/2022; 09:00)
     Route: 065
     Dates: start: 20221227, end: 20230112
  2. DEXAMETHASONE [Suspect]
     Active Substance: DEXAMETHASONE
     Dosage: 20 MG, 6 TIMES (1,2,8,9,15,16)
     Route: 065
     Dates: start: 20230124, end: 20230208
  3. DEXAMETHASONE [Suspect]
     Active Substance: DEXAMETHASONE
     Dosage: 20 MG , 6 TIMES (1,2,8,9,15,16)
     Route: 065
     Dates: start: 20230221, end: 20230308
  4. DEXAMETHASONE [Suspect]
     Active Substance: DEXAMETHASONE
     Dosage: 20 MG , 6 TIMES (1,2,8,9,15,16)
     Route: 065
     Dates: start: 20230321, end: 20230405
  5. DEXAMETHASONE [Suspect]
     Active Substance: DEXAMETHASONE
     Dosage: 20 MG , 6 TIMES (1,2,8,9,15,16)
     Route: 065
     Dates: start: 20230418, end: 20230503
  6. DEXAMETHASONE [Suspect]
     Active Substance: DEXAMETHASONE
     Dosage: 20 MG , 6 TIMES (1,2,8,9,15,16)
     Route: 065
     Dates: start: 20230516, end: 20230606
  7. DEXAMETHASONE [Suspect]
     Active Substance: DEXAMETHASONE
     Dosage: 20 MG , 6 TIMES (1,2,8,9,15,16,22,23)
     Route: 065
     Dates: start: 20230619, end: 20230711
  8. DEXAMETHASONE [Suspect]
     Active Substance: DEXAMETHASONE
     Dosage: 20 MG , 6 TIMES (1,2,8,9,15,16,22,23)
     Route: 065
     Dates: start: 20230717, end: 20230808
  9. DEXAMETHASONE [Suspect]
     Active Substance: DEXAMETHASONE
     Dosage: 20 MG , 6 TIMES (1,2,8,9,15,16,22,23)
     Route: 065
     Dates: start: 20230814, end: 20230905
  10. DEXAMETHASONE [Suspect]
     Active Substance: DEXAMETHASONE
     Dosage: 20 MG, 6 TIMES
     Route: 065
     Dates: start: 20230911, end: 20230926
  11. DEXAMETHASONE [Suspect]
     Active Substance: DEXAMETHASONE
     Dosage: 20 MG, 8 TIMES (1,2,8,9,15,16,22,23)
     Route: 065
     Dates: start: 20240115, end: 20240207
  12. DEXAMETHASONE [Suspect]
     Active Substance: DEXAMETHASONE
     Dosage: 20 MG, 8 TIMES (1,2,8,9,15,16,22,23)
     Route: 065
     Dates: start: 20240212, end: 20240213
  13. ISATUXIMAB [Suspect]
     Active Substance: ISATUXIMAB
     Indication: Plasma cell myeloma refractory
     Dosage: 800 MG, QW (START DATE: 27/DEC/2022;09:30)
     Route: 065
     Dates: start: 20221227, end: 20230119
  14. ISATUXIMAB [Suspect]
     Active Substance: ISATUXIMAB
     Dosage: 800 MG, BIW
     Route: 065
     Dates: start: 20230124, end: 20230207
  15. ISATUXIMAB [Suspect]
     Active Substance: ISATUXIMAB
     Dosage: 800 MG, BIW
     Route: 065
     Dates: start: 20230221, end: 20230307
  16. ISATUXIMAB [Suspect]
     Active Substance: ISATUXIMAB
     Dosage: 800 MG, BIW
     Route: 065
     Dates: start: 20230321, end: 20230407
  17. ISATUXIMAB [Suspect]
     Active Substance: ISATUXIMAB
     Dosage: 800 MG, BIW
     Route: 065
     Dates: start: 20230418, end: 20230502
  18. ISATUXIMAB [Suspect]
     Active Substance: ISATUXIMAB
     Dosage: 800 MG, BIW
     Route: 065
     Dates: start: 20230516, end: 20230605
  19. ISATUXIMAB [Suspect]
     Active Substance: ISATUXIMAB
     Dosage: 800 MG, BIW
     Route: 065
     Dates: start: 20230619, end: 20230703
  20. ISATUXIMAB [Suspect]
     Active Substance: ISATUXIMAB
     Dosage: 800 MG, BIW
     Route: 065
     Dates: start: 20230717, end: 20230731
  21. ISATUXIMAB [Suspect]
     Active Substance: ISATUXIMAB
     Dosage: 800 MG, BIW
     Route: 065
     Dates: start: 20230814, end: 20230828
  22. ISATUXIMAB [Suspect]
     Active Substance: ISATUXIMAB
     Dosage: 800 MG, BIW
     Route: 065
     Dates: start: 20230911, end: 20230925
  23. ISATUXIMAB [Suspect]
     Active Substance: ISATUXIMAB
     Dosage: 800 MG, BIW
     Route: 065
     Dates: start: 20240115, end: 20240130
  24. ISATUXIMAB [Suspect]
     Active Substance: ISATUXIMAB
     Dosage: 800 MG, BIW
     Route: 065
     Dates: start: 20240212, end: 20240213
  25. CARFILZOMIB [Suspect]
     Active Substance: CARFILZOMIB
     Indication: Plasma cell myeloma refractory
     Dosage: 39 MG, 2 TIMES (START DATE: 27/DEC/2022;12:30)
     Route: 065
     Dates: start: 20221227, end: 20221228
  26. CARFILZOMIB [Suspect]
     Active Substance: CARFILZOMIB
     Dosage: 82 MG, 4 TIMES ( 8,9,15,16)
     Route: 065
     Dates: start: 20230103, end: 20230112
  27. CARFILZOMIB [Suspect]
     Active Substance: CARFILZOMIB
     Dosage: 110 MG, 6 TIMES ( 1,2,8,9,15,16)
     Route: 065
     Dates: start: 20230124, end: 20230208
  28. CARFILZOMIB [Suspect]
     Active Substance: CARFILZOMIB
     Dosage: 110 MG, 6 TIMES ( 1, 2, 8, 9,15,16)
     Route: 065
     Dates: start: 20230221, end: 20230308
  29. CARFILZOMIB [Suspect]
     Active Substance: CARFILZOMIB
     Dosage: 110 MG, 6 TIMES (1,2,8,9,15,16)
     Route: 065
     Dates: start: 20230418, end: 20230503
  30. CARFILZOMIB [Suspect]
     Active Substance: CARFILZOMIB
     Dosage: 110 MG, 6 TIMES (1,2,8,9,15,16)
     Route: 065
     Dates: start: 20230516, end: 20230606
  31. CARFILZOMIB [Suspect]
     Active Substance: CARFILZOMIB
     Dosage: 110 MG, 6 TIMES (1,2,8,9,15,16)
     Route: 065
     Dates: start: 20230619, end: 20230704
  32. CARFILZOMIB [Suspect]
     Active Substance: CARFILZOMIB
     Dosage: 110 MG, 6 TIMES (1,2,8,9,15,16)
     Route: 065
     Dates: start: 20230717, end: 20230801
  33. CARFILZOMIB [Suspect]
     Active Substance: CARFILZOMIB
     Dosage: 110 MG, 8 TIMES (1,2,8,9,15,16)
     Route: 065
     Dates: start: 20230814, end: 20230829
  34. CARFILZOMIB [Suspect]
     Active Substance: CARFILZOMIB
     Dosage: 110 MG, 6 TIMES (1,2,8,9,15,16)
     Route: 065
     Dates: start: 20230911, end: 20230926
  35. CARFILZOMIB [Suspect]
     Active Substance: CARFILZOMIB
     Dosage: 11 MG, 6 TIMES (1,2,8,9,15,16)
     Route: 065
     Dates: start: 20240115, end: 20240131
  36. CARFILZOMIB [Suspect]
     Active Substance: CARFILZOMIB
     Dosage: 110 MG, 6 TIMES (1,2,8,9,15,16)
     Route: 065
     Dates: start: 20240212, end: 20240213
  37. CLEMASTINE [Concomitant]
     Active Substance: CLEMASTINE
     Indication: Prophylaxis
     Dosage: UNKNOWN
     Dates: start: 20221227
  38. MONTELUKAST [Concomitant]
     Active Substance: MONTELUKAST
     Indication: Prophylaxis
     Dosage: UNKNOWN
     Dates: start: 20221227
  39. LERCANIDIPINE [Concomitant]
     Active Substance: LERCANIDIPINE
     Indication: Product used for unknown indication
     Dosage: UNKNOWN
  40. TELMISARTAN [Concomitant]
     Active Substance: TELMISARTAN
     Indication: Product used for unknown indication
     Dosage: UNKNOWN
  41. INDAPAMIDE [Concomitant]
     Active Substance: INDAPAMIDE
     Indication: Product used for unknown indication
     Dosage: UNKNOWN
  42. ATORVASTATIN [Concomitant]
     Active Substance: ATORVASTATIN
     Indication: Product used for unknown indication
     Dosage: UNKNOWN
     Dates: start: 202107
  43. CHOLECALCIFEROL [Concomitant]
     Active Substance: CHOLECALCIFEROL
     Indication: Product used for unknown indication
     Dosage: UNKNOWN
  44. COBALAMIN [Concomitant]
     Active Substance: COBALAMIN
     Indication: Product used for unknown indication
     Dosage: UNKNOWN
     Dates: start: 2023
  45. KEPPRA [Concomitant]
     Active Substance: LEVETIRACETAM
     Indication: Product used for unknown indication
     Dosage: UNKNOWN
     Dates: start: 202310
  46. ALBUTEROL [Concomitant]
     Active Substance: ALBUTEROL
     Indication: Product used for unknown indication
     Dosage: UNKNOWN
     Dates: start: 20231007
  47. MARCUMAR [Concomitant]
     Active Substance: PHENPROCOUMON
     Indication: Product used for unknown indication
     Dosage: UNKNOWN
     Dates: start: 202310
  48. MELPERONE [Concomitant]
     Active Substance: MELPERONE
     Indication: Product used for unknown indication
     Dosage: UNKNOWN
     Dates: start: 202311
  49. SODIUM BICARBONATE [Concomitant]
     Active Substance: SODIUM BICARBONATE
     Indication: Product used for unknown indication
     Dosage: UNKNOWN
     Dates: start: 202311
  50. METAMIZOLE SODIUM [Concomitant]
     Active Substance: METAMIZOLE SODIUM
     Indication: Product used for unknown indication
     Dosage: UNKNOWN
     Dates: start: 2023
  51. PIPAMPERONE HYDROCHLORIDE [Concomitant]
     Active Substance: PIPAMPERONE HYDROCHLORIDE
     Indication: Product used for unknown indication
     Dosage: UNKNOWN
     Dates: start: 2023
  52. FOLIC ACID [Concomitant]
     Active Substance: FOLIC ACID
     Indication: Product used for unknown indication
     Dosage: UNKNOWN
     Dates: start: 2023

REACTIONS (2)
  - Nephrogenic anaemia [Unknown]
  - Influenza [Recovered/Resolved]

NARRATIVE: CASE EVENT DATE: 20240213
